FAERS Safety Report 7536793-4 (Version None)
Quarter: 2011Q2

REPORT INFORMATION
  Report Type: 
  Country: None (occurrence: None)
  Receive Date: 20110608
  Receipt Date: 20110608
  Transmission Date: 20111010
  Serious: Yes (Life-Threatening)
  Sender: FDA-Public Use
  Company Number: None

PATIENT
  Age: 74 Year
  Sex: Female
  Weight: 72.5755 kg

DRUGS (3)
  1. LEVAQUIN [Suspect]
     Indication: PRODUCTIVE COUGH
     Dosage: 500MG 1 A DAY PO
     Route: 048
     Dates: start: 20110603, end: 20110605
  2. LEVAQUIN [Suspect]
     Indication: COUGH
     Dosage: 500MG 1 A DAY PO
     Route: 048
     Dates: start: 20110603, end: 20110605
  3. LEVAQUIN [Suspect]
     Indication: PYREXIA
     Dosage: 500MG 1 A DAY PO
     Route: 048
     Dates: start: 20110603, end: 20110605

REACTIONS (7)
  - ABDOMINAL PAIN [None]
  - HYPERHIDROSIS [None]
  - FALL [None]
  - DIARRHOEA [None]
  - URINARY INCONTINENCE [None]
  - VOMITING [None]
  - MUSCLE SPASMS [None]
